FAERS Safety Report 13114914 (Version 1)
Quarter: 2017Q1

REPORT INFORMATION
  Report Type: Spontaneous
  Country: US (occurrence: US)
  Receive Date: 20170113
  Receipt Date: 20170113
  Transmission Date: 20170428
  Serious: Yes (Hospitalization)
  Sender: FDA-Public Use
  Company Number: US-VERTEX PHARMACEUTICALS-2017-000123

PATIENT
  Sex: Female

DRUGS (19)
  1. FLONASE [Concomitant]
     Active Substance: FLUTICASONE PROPIONATE
  2. AMBIEN [Concomitant]
     Active Substance: ZOLPIDEM TARTRATE
  3. IRON [Concomitant]
     Active Substance: IRON
  4. KALYDECO [Suspect]
     Active Substance: IVACAFTOR
     Indication: CYSTIC FIBROSIS
     Dosage: 150 MG, BID
     Route: 048
     Dates: start: 201603
  5. SINGULAIR [Concomitant]
     Active Substance: MONTELUKAST SODIUM
  6. ZYVOX [Concomitant]
     Active Substance: LINEZOLID
  7. ALBUTEROL. [Concomitant]
     Active Substance: ALBUTEROL
  8. CALCIUM [Concomitant]
     Active Substance: CALCIUM
  9. LACTULOSE. [Concomitant]
     Active Substance: LACTULOSE
  10. NOVOLOG [Concomitant]
     Active Substance: INSULIN ASPART
  11. MIRALAX [Concomitant]
     Active Substance: POLYETHYLENE GLYCOL 3350
  12. TIZANIDINE. [Concomitant]
     Active Substance: TIZANIDINE
  13. ZYRTEC [Concomitant]
     Active Substance: CETIRIZINE HYDROCHLORIDE
  14. VITAMIN D3 [Concomitant]
     Active Substance: CHOLECALCIFEROL
  15. VITAMIN A + BETA CAROTENE [Concomitant]
  16. MEGACE [Concomitant]
     Active Substance: MEGESTROL ACETATE
  17. PANCREAZE [Concomitant]
     Active Substance: PANCRELIPASE AMYLASE\PANCRELIPASE LIPASE\PANCRELIPASE PROTEASE
  18. ADVAIR HFA [Concomitant]
     Active Substance: FLUTICASONE PROPIONATE\SALMETEROL XINAFOATE
  19. OMEPRAZOLE. [Concomitant]
     Active Substance: OMEPRAZOLE

REACTIONS (2)
  - Infective pulmonary exacerbation of cystic fibrosis [Unknown]
  - Infection [Unknown]

NARRATIVE: CASE EVENT DATE: 2016
